FAERS Safety Report 18680593 (Version 1)
Quarter: 2020Q4

REPORT INFORMATION
  Report Type: Spontaneous
  Country: FR (occurrence: FR)
  Receive Date: 20201229
  Receipt Date: 20201229
  Transmission Date: 20210114
  Serious: Yes (Hospitalization)
  Sender: FDA-Public Use
  Company Number: NVSC2020FR338699

PATIENT
  Age: 71 Year
  Sex: Male

DRUGS (4)
  1. HUMIRA [Suspect]
     Active Substance: ADALIMUMAB
     Indication: DERMATITIS
     Dosage: UNK
     Route: 058
     Dates: start: 20140825, end: 201512
  2. COSENTYX [Suspect]
     Active Substance: SECUKINUMAB
     Indication: DERMATITIS
     Dosage: 150 MG, QMO
     Route: 058
     Dates: start: 20181203, end: 20201112
  3. NEORAL [Suspect]
     Active Substance: CYCLOSPORINE
     Indication: DERMATITIS
     Dosage: 200 MG, QD
     Route: 048
     Dates: start: 201512, end: 20160115
  4. STELARA [Suspect]
     Active Substance: USTEKINUMAB
     Indication: DERMATITIS
     Dosage: 45 MG
     Route: 058
     Dates: start: 20160411, end: 201811

REACTIONS (1)
  - Cholangiocarcinoma [Not Recovered/Not Resolved]

NARRATIVE: CASE EVENT DATE: 20201016
